FAERS Safety Report 12561562 (Version 2)
Quarter: 2016Q3

REPORT INFORMATION
  Report Type: Spontaneous
  Country: CA (occurrence: CA)
  Receive Date: 20160715
  Receipt Date: 20160720
  Transmission Date: 20161109
  Serious: Yes (Other)
  Sender: FDA-Public Use
  Company Number: CA-LPDUSPRD-20160603

PATIENT
  Age: 53 Year
  Sex: Female

DRUGS (8)
  1. ATENOLOL. [Concomitant]
     Active Substance: ATENOLOL
     Dosage: 100 MG A DAY
     Route: 065
  2. CALCIUM [Concomitant]
     Active Substance: CALCIUM
     Dosage: 1000 MG A DAY
     Route: 065
  3. HYDROCHLOROTHIAZIDE. [Concomitant]
     Active Substance: HYDROCHLOROTHIAZIDE
     Dosage: 25 MG A DAY
     Route: 065
  4. VITAMIN D [Concomitant]
     Active Substance: CHOLECALCIFEROL
     Dosage: 3000 IU A DAY
     Route: 065
  5. ENTYVIO INFUSION [Concomitant]
     Dosage: DOSE UNKNOWN
     Route: 065
  6. VENOFER [Suspect]
     Active Substance: IRON SUCROSE
     Dosage: 300 MG IN 250 ML IN 90 MIN
     Route: 042
     Dates: start: 20160615, end: 20160615
  7. FOLIC ACID. [Concomitant]
     Active Substance: FOLIC ACID
     Dosage: 1 MG A DAY
     Route: 065
  8. MULTIVITAMIN [Concomitant]
     Active Substance: VITAMINS
     Dosage: ONCE DAILY
     Route: 065

REACTIONS (3)
  - Abdominal pain upper [Unknown]
  - Faeces discoloured [Unknown]
  - Local swelling [Unknown]

NARRATIVE: CASE EVENT DATE: 20160615
